FAERS Safety Report 9792549 (Version 1)
Quarter: 2014Q1

REPORT INFORMATION
  Report Type: Spontaneous
  Country: US (occurrence: US)
  Receive Date: 20140102
  Receipt Date: 20140102
  Transmission Date: 20141002
  Serious: No
  Sender: FDA-Public Use
  Company Number: US-SANOFI-AVENTIS-2013SA095444

PATIENT
  Sex: Female

DRUGS (10)
  1. AUBAGIO [Suspect]
     Indication: MULTIPLE SCLEROSIS
     Route: 048
     Dates: start: 20130701
  2. GABAPENTIN [Concomitant]
  3. LORATADINE [Concomitant]
  4. CALCIUM OYSTER SHELL [Concomitant]
  5. VITAMIN B12 [Concomitant]
  6. TRAMADOL [Concomitant]
  7. FOLIC ACID [Concomitant]
  8. WARFARIN SODIUM [Concomitant]
  9. MILNACIPRAN [Concomitant]
  10. SALBUTAMOL SULFATE [Concomitant]

REACTIONS (1)
  - Constipation [Unknown]
